FAERS Safety Report 4315312-X (Version None)
Quarter: 2004Q1

REPORT INFORMATION
  Report Type: 
  Country: None (occurrence: None)
  Receive Date: 20040310
  Receipt Date: 20040310
  Transmission Date: 20041129
  Serious: No
  Sender: FDA-Public Use
  Company Number: None

PATIENT
  Age: 37 Year
  Sex: Female
  Weight: 61.2356 kg

DRUGS (5)
  1. GEODON [Suspect]
     Indication: BIPOLAR I DISORDER
     Dosage: 40 MG PO BID
     Route: 048
     Dates: start: 20020906, end: 20030930
  2. TRILEPTAL [Concomitant]
  3. KLONOPIN [Concomitant]
  4. LEVOTHROID [Concomitant]
  5. PREMARIN [Concomitant]

REACTIONS (1)
  - DYSTONIA [None]
